FAERS Safety Report 7564280-6 (Version None)
Quarter: 2011Q2

REPORT INFORMATION
  Report Type: 
  Country: None (occurrence: None)
  Receive Date: 20110622
  Receipt Date: 20110609
  Transmission Date: 20111010
  Serious: Yes (Other)
  Sender: FDA-Public Use
  Company Number: PHFR2011GB02504

PATIENT
  Sex: Female

DRUGS (3)
  1. CLOZAPINE [Suspect]
     Indication: SCHIZOPHRENIA
     Dosage: 400 MG, QD
     Route: 048
     Dates: start: 20110117
  2. CLOZAPINE [Suspect]
     Dosage: 400 MG, QD
     Route: 048
     Dates: start: 20110408, end: 20110602
  3. LYMECYCLINE [Concomitant]
     Indication: ACNE

REACTIONS (9)
  - SOMATISATION DISORDER [None]
  - PAIN IN EXTREMITY [None]
  - STRESS [None]
  - MALAISE [None]
  - DISORIENTATION [None]
  - PAIN [None]
  - ANXIETY [None]
  - DELIRIUM [None]
  - ACNE [None]
